FAERS Safety Report 4859978-4 (Version None)
Quarter: 2005Q4

REPORT INFORMATION
  Report Type: 
  Country: None (occurrence: None)
  Receive Date: 20051219
  Receipt Date: 20050113
  Transmission Date: 20060501
  Serious: Yes (Hospitalization)
  Sender: FDA-Public Use
  Company Number: US-MERCK-0501USA02284

PATIENT
  Age: 51 Year
  Sex: Male
  Weight: 84 kg

DRUGS (12)
  1. VIOXX [Suspect]
     Indication: ARTHRALGIA
     Route: 048
     Dates: start: 20020101, end: 20020401
  2. AMITRIPTYLINE HYDROCHLORIDE [Concomitant]
     Route: 065
  3. TOPROL-XL [Concomitant]
     Route: 065
  4. ALLOPURINOL [Concomitant]
     Route: 065
  5. HYDROCODONE BITARTRATE [Concomitant]
     Route: 065
  6. BACLOFEN [Concomitant]
     Route: 065
  7. TYLENOL W/ CODEINE NO. 3 [Concomitant]
     Route: 065
  8. COLCHICINE [Concomitant]
     Route: 065
  9. NORVASC [Concomitant]
     Route: 065
  10. SPIRONOLACTONE [Concomitant]
     Route: 065
  11. DICLOFENAC [Concomitant]
     Route: 065
  12. PIROXICAM [Concomitant]
     Route: 065

REACTIONS (14)
  - ALCOHOL USE [None]
  - BACTERIA STOOL IDENTIFIED [None]
  - BLOOD PRESSURE INADEQUATELY CONTROLLED [None]
  - CEREBRAL HAEMATOMA [None]
  - CEREBROVASCULAR ACCIDENT [None]
  - CORONARY ARTERY DISEASE [None]
  - DIABETES MELLITUS [None]
  - FALL [None]
  - HEMIPARESIS [None]
  - INTERVERTEBRAL DISC OPERATION [None]
  - MENISCUS LESION [None]
  - RASH [None]
  - SUBARACHNOID HAEMORRHAGE [None]
  - TREATMENT NONCOMPLIANCE [None]
